FAERS Safety Report 25514541 (Version 1)
Quarter: 2025Q3

REPORT INFORMATION
  Report Type: Spontaneous
  Country: US (occurrence: US)
  Receive Date: 20250703
  Receipt Date: 20250703
  Transmission Date: 20251020
  Serious: No
  Sender: RADIUS PHARM
  Company Number: US-RADIUS HEALTH INC.-2025US000305

PATIENT
  Sex: Female

DRUGS (1)
  1. TYMLOS [Suspect]
     Active Substance: ABALOPARATIDE
     Indication: Product used for unknown indication

REACTIONS (5)
  - Wrong technique in product usage process [Unknown]
  - Multiple use of single-use product [Unknown]
  - Skin reaction [Unknown]
  - Product quality issue [Unknown]
  - Rash erythematous [Unknown]
